FAERS Safety Report 6675244-9 (Version None)
Quarter: 2010Q2

REPORT INFORMATION
  Report Type: 
  Country: None (occurrence: None)
  Receive Date: 20100409
  Receipt Date: 20100331
  Transmission Date: 20101027
  Serious: Yes (Death, Other)
  Sender: FDA-Public Use
  Company Number: US-AMGEN-QUU403282

PATIENT
  Age: 68 Year
  Sex: Female

DRUGS (2)
  1. NPLATE [Suspect]
     Indication: IDIOPATHIC THROMBOCYTOPENIC PURPURA
     Dates: start: 20100301
  2. PREDNISONE TAB [Concomitant]

REACTIONS (3)
  - CARDIAC DISORDER [None]
  - SEPSIS [None]
  - UNRESPONSIVE TO STIMULI [None]
